FAERS Safety Report 8917035 (Version 1)
Quarter: 2012Q4

REPORT INFORMATION
  Report Type: 
  Country: FR (occurrence: FR)
  Receive Date: 20121120
  Receipt Date: 20121120
  Transmission Date: 20130627
  Serious: Yes (Life-Threatening, Hospitalization)
  Sender: FDA-Public Use
  Company Number: FR-ASTRAZENECA-2012SE87435

PATIENT
  Age: 18262 Day
  Sex: Male

DRUGS (3)
  1. XEROQUEL [Suspect]
     Indication: DEPRESSION
     Route: 048
  2. XEROQUEL [Suspect]
     Indication: DEPRESSION
     Route: 048
     Dates: start: 20121109, end: 20121109
  3. NORVIR [Concomitant]
     Indication: HIV TEST POSITIVE

REACTIONS (5)
  - Toxicity to various agents [Recovered/Resolved]
  - Anaemia [Recovering/Resolving]
  - Melaena [Recovering/Resolving]
  - Renal failure [Recovering/Resolving]
  - Coma [Recovering/Resolving]
